FAERS Safety Report 10562339 (Version 1)
Quarter: 2014Q4

REPORT INFORMATION
  Report Type: Spontaneous
  Country: JP (occurrence: None)
  Receive Date: 20141031
  Receipt Date: 20141031
  Transmission Date: 20150529
  Serious: Yes (Death, Life-Threatening)
  Sender: FDA-Public Use
  Company Number: FK201404517

PATIENT
  Age: 51 Year
  Sex: Male
  Weight: 48 kg

DRUGS (7)
  1. LITHIUM CARBONATE. [Concomitant]
     Active Substance: LITHIUM CARBONATE
  2. ZOTEPINE [Concomitant]
     Active Substance: ZOTEPINE
  3. VALPROIC ACID. [Concomitant]
     Active Substance: VALPROIC ACID
  4. HALOPERIDOL. [Concomitant]
     Active Substance: HALOPERIDOL
  5. FLUPHENAZINE DECANOATE INJECTION, USP (FLUPHENAZINE DECANOATE) (FLUPHENAZINE DECANOATE) [Suspect]
     Active Substance: FLUPHENAZINE DECANOATE
     Indication: PRODUCT USED FOR UNKNOWN INDICATION
     Dosage: 1 IN 1 M
     Route: 030
     Dates: end: 20140212
  6. RISPERIDONE. [Concomitant]
     Active Substance: RISPERIDONE
  7. BIPERIDEN [Concomitant]
     Active Substance: BIPERIDEN

REACTIONS (6)
  - Respiratory failure [None]
  - Neuroleptic malignant syndrome [None]
  - Sudden death [None]
  - Dysphagia [None]
  - Mental impairment [None]
  - Weight decreased [None]

NARRATIVE: CASE EVENT DATE: 20130224
